FAERS Safety Report 22349367 (Version 1)
Quarter: 2023Q2

REPORT INFORMATION
  Report Type: Spontaneous
  Country: US (occurrence: US)
  Receive Date: 20230522
  Receipt Date: 20230522
  Transmission Date: 20230722
  Serious: No
  Sender: FDA-Public Use
  Company Number: US-009507513-2304USA009629

PATIENT
  Sex: Male

DRUGS (3)
  1. KEYTRUDA [Suspect]
     Active Substance: PEMBROLIZUMAB
     Indication: Non-small cell lung cancer
     Dosage: 200 MILLIGRAM (MG), EVERY 3 WEEKS (Q3W)
     Route: 042
     Dates: start: 20230403, end: 20230403
  2. CARBOPLATIN [Concomitant]
     Active Substance: CARBOPLATIN
  3. ALIMTA [Concomitant]
     Active Substance: PEMETREXED DISODIUM

REACTIONS (1)
  - Rash [Recovering/Resolving]

NARRATIVE: CASE EVENT DATE: 20230417
